FAERS Safety Report 17161434 (Version 1)
Quarter: 2019Q4

REPORT INFORMATION
  Report Type: Report from Study
  Country: JP (occurrence: JP)
  Receive Date: 20191216
  Receipt Date: 20191216
  Transmission Date: 20200122
  Serious: Yes (Other)
  Sender: FDA-Public Use
  Company Number: JP-ALEXION-A201808933

PATIENT

DRUGS (19)
  1. PHENOBAL                           /00023201/ [Concomitant]
     Active Substance: PHENOBARBITAL
     Dosage: 27.5 MG, BID
     Route: 048
     Dates: start: 20180809, end: 20180816
  2. MUCOSAL                            /00082801/ [Concomitant]
     Indication: PRODUCT USED FOR UNKNOWN INDICATION
     Dosage: 4.5 MG, BID
     Route: 048
  3. RIVOTRIL [Concomitant]
     Active Substance: CLONAZEPAM
     Indication: HYPOPHOSPHATASIA
     Dosage: 2.5 MG, BID
     Route: 048
  4. PYRIDOXINE [Concomitant]
     Active Substance: PYRIDOXINE
     Indication: HYPOPHOSPHATASIA
     Dosage: 225 MG, BID
     Route: 048
     Dates: end: 20190120
  5. EPINASTINE. [Concomitant]
     Active Substance: EPINASTINE HYDROCHLORIDE
     Indication: INJECTION SITE ERYTHEMA
     Dosage: 5 MG, QD
     Route: 048
     Dates: start: 20181203
  6. E KEPPRA [Concomitant]
     Active Substance: LEVETIRACETAM
     Dosage: 225 MG, BID
     Route: 048
     Dates: start: 20190217
  7. VITAMIN B6 [Concomitant]
     Active Substance: PYRIDOXINE HYDROCHLORIDE
     Indication: HYPOPHOSPHATASIA
     Dosage: 225 MG, BID
     Route: 048
     Dates: start: 20190121
  8. STRENSIQ [Suspect]
     Active Substance: ASFOTASE ALFA
     Indication: HYPOPHOSPHATASIA
     Dosage: 2 MG/KG, TIW
     Route: 058
     Dates: start: 20151002
  9. ALFAROL [Suspect]
     Active Substance: ALFACALCIDOL
     Indication: HYPOPHOSPHATASIA
     Dosage: 1 ML, QD
     Route: 048
     Dates: end: 20180912
  10. ALFAROL [Suspect]
     Active Substance: ALFACALCIDOL
     Dosage: 2 ML, QD
     Route: 048
     Dates: start: 20180913, end: 20181004
  11. ALFAROL [Suspect]
     Active Substance: ALFACALCIDOL
     Dosage: 1 ML, QD
     Route: 048
     Dates: start: 20181005, end: 20181115
  12. PHENOBAL                           /00023201/ [Concomitant]
     Active Substance: PHENOBARBITAL
     Dosage: 45 MG, BID
     Route: 048
     Dates: start: 20190216
  13. E KEPPRA [Concomitant]
     Active Substance: LEVETIRACETAM
     Indication: HYPOPHOSPHATASIA
     Dosage: 160 MG, BID
     Route: 048
     Dates: end: 20180816
  14. PHENOBAL                           /00023201/ [Concomitant]
     Active Substance: PHENOBARBITAL
     Dosage: 44 MG, BID
     Route: 048
     Dates: start: 20180817, end: 20190215
  15. PHENOBAL                           /00023201/ [Concomitant]
     Active Substance: PHENOBARBITAL
     Indication: HYPOPHOSPHATASIA
     Dosage: 55 MG, BID
     Route: 048
     Dates: end: 20180809
  16. E KEPPRA [Concomitant]
     Active Substance: LEVETIRACETAM
     Dosage: 110 MG, BID
     Route: 048
     Dates: start: 20180817, end: 20190108
  17. E KEPPRA [Concomitant]
     Active Substance: LEVETIRACETAM
     Dosage: 150 MG, BID
     Route: 048
     Dates: start: 20190109, end: 20190216
  18. CARBOCISTEINE [Concomitant]
     Active Substance: CARBOCYSTEINE
     Indication: PRODUCT USED FOR UNKNOWN INDICATION
     Dosage: 100 MG, TID
     Route: 048
  19. L CARTIN FF [Concomitant]
     Active Substance: LEVOCARNITINE
     Indication: PRODUCT USED FOR UNKNOWN INDICATION
     Dosage: 1 ML, TID
     Route: 048

REACTIONS (7)
  - Nephrocalcinosis [Unknown]
  - Talipes [Unknown]
  - Drug ineffective [Unknown]
  - Tooth loss [Unknown]
  - Skull malformation [Unknown]
  - Neutralising antibodies positive [Unknown]
  - Nephrolithiasis [Recovered/Resolved]

NARRATIVE: CASE EVENT DATE: 20180710
